FAERS Safety Report 7029964-7 (Version None)
Quarter: 2010Q4

REPORT INFORMATION
  Report Type: 
  Country: None (occurrence: None)
  Receive Date: 20101001
  Receipt Date: 20100614
  Transmission Date: 20110411
  Serious: Yes (Death)
  Sender: FDA-Public Use
  Company Number: OSCN-PR-1006S-0159

PATIENT

DRUGS (1)
  1. OMNISCAN [Suspect]

REACTIONS (1)
  - RESPIRATORY DISORDER [None]
